FAERS Safety Report 21601604 (Version 10)
Quarter: 2024Q3

REPORT INFORMATION
  Report Type: Spontaneous
  Country: US (occurrence: US)
  Receive Date: 20221116
  Receipt Date: 20240716
  Transmission Date: 20241017
  Serious: Yes (Other)
  Sender: TAKEDA
  Company Number: US-TAKEDA-2022TUS084679

PATIENT
  Age: 47 Year
  Sex: Female

DRUGS (3)
  1. ENTYVIO [Suspect]
     Active Substance: VEDOLIZUMAB
     Indication: Colitis ulcerative
     Dosage: UNK UNK, Q4WEEKS
     Route: 042
     Dates: start: 20210501, end: 20240301
  2. ENTYVIO [Suspect]
     Active Substance: VEDOLIZUMAB
     Indication: Colitis ulcerative
     Dosage: 108 MILLIGRAM, Q2WEEKS
     Route: 058
     Dates: start: 20240301
  3. LISINOPRIL [Concomitant]
     Active Substance: LISINOPRIL
     Dosage: UNK

REACTIONS (12)
  - Cholecystectomy [Unknown]
  - Pain [Recovered/Resolved]
  - Off label use [Unknown]
  - Illness [Unknown]
  - Diarrhoea [Not Recovered/Not Resolved]
  - Therapeutic reaction time decreased [Unknown]
  - Product dose omission issue [Unknown]
  - Vascular access site scar [Not Recovered/Not Resolved]
  - Abdominal discomfort [Unknown]
  - Memory impairment [Not Recovered/Not Resolved]
  - Flatulence [Not Recovered/Not Resolved]
  - Arthralgia [Not Recovered/Not Resolved]

NARRATIVE: CASE EVENT DATE: 20210501
